FAERS Safety Report 7292941-5 (Version None)
Quarter: 2011Q1

REPORT INFORMATION
  Report Type: 
  Country: None (occurrence: None)
  Receive Date: 20110215
  Receipt Date: 20110207
  Transmission Date: 20110831
  Serious: Yes (Hospitalization)
  Sender: FDA-Public Use
  Company Number: US-JNJFOC-20110203680

PATIENT
  Sex: Female
  Weight: 61.69 kg

DRUGS (7)
  1. AMITIZA [Concomitant]
  2. REMICADE [Suspect]
     Indication: INFLAMMATORY BOWEL DISEASE
     Route: 042
  3. FLORINEF [Concomitant]
  4. PERIACTIN [Concomitant]
  5. SENNA [Concomitant]
  6. LAMICTAL [Concomitant]
  7. MIDODRINE HYDROCHLORIDE [Concomitant]

REACTIONS (1)
  - GASTROINTESTINAL DISORDER [None]
